FAERS Safety Report 5178925-1 (Version None)
Quarter: 2006Q4

REPORT INFORMATION
  Report Type: 
  Country: None (occurrence: None)
  Receive Date: 20061213
  Receipt Date: 20061213
  Transmission Date: 20070319
  Serious: Yes (Hospitalization)
  Sender: FDA-Public Use
  Company Number: None

PATIENT
  Age: 64 Year
  Sex: Male
  Weight: 82.2 kg

DRUGS (1)
  1. SPIRONOLACTONE [Suspect]
     Dosage: 400MG  QD PO
     Route: 048

REACTIONS (4)
  - HYPONATRAEMIA [None]
  - HYPOVOLAEMIA [None]
  - LEUKOCYTOSIS [None]
  - THIRST [None]
